FAERS Safety Report 10597349 (Version 1)
Quarter: 2014Q4

REPORT INFORMATION
  Report Type: Spontaneous
  Country: US (occurrence: None)
  Receive Date: 20141120
  Receipt Date: 20141120
  Transmission Date: 20150529
  Serious: Yes (Death)
  Sender: FDA-Public Use
  Company Number: None

PATIENT
  Age: 57 Year
  Sex: Female
  Weight: 54.43 kg

DRUGS (1)
  1. METHIMAZOLE. [Suspect]
     Active Substance: METHIMAZOLE
     Indication: HYPERTHYROIDISM
     Dosage: DATE OF USE: 3/4/14 - 6/11/14 THEN START AGAIN 10/15/14, 10MG, ONCE DAILY, BY MOUTH
     Route: 048
     Dates: start: 20140304, end: 20140611

REACTIONS (7)
  - Pulmonary congestion [None]
  - Agranulocytosis [None]
  - Dizziness [None]
  - Sinus tachycardia [None]
  - Chest discomfort [None]
  - Asthenia [None]
  - Cough [None]

NARRATIVE: CASE EVENT DATE: 20141110
